FAERS Safety Report 8891030 (Version 1)
Quarter: 2012Q4

REPORT INFORMATION
  Report Type: Report from Study
  Country: FR (occurrence: FR)
  Receive Date: 20121107
  Receipt Date: 20121107
  Transmission Date: 20130627
  Serious: Yes (Hospitalization)
  Sender: FDA-Public Use
  Company Number: FR-TEVA-367167ISR

PATIENT
  Age: 81 Year
  Sex: Male
  Weight: 59 kg

DRUGS (19)
  1. DEXAMETHASONE [Suspect]
     Indication: MULTIPLE MYELOMA
     Dates: start: 20100519
  2. DEXAMETHASONE [Suspect]
     Dates: start: 20101201, end: 20101215
  3. CC-5013 [Suspect]
     Indication: MULTIPLE MYELOMA
     Route: 048
     Dates: start: 20100519
  4. CC-5013 [Suspect]
     Route: 048
     Dates: start: 20101201, end: 20101215
  5. NOVORAPID [Concomitant]
     Dosage: before each meal
  6. AMOXICILLIN [Concomitant]
     Indication: PROPHYLAXIS
     Dosage: 1000 Milligram Daily;
     Route: 048
  7. ZELITREX [Concomitant]
     Indication: PROPHYLAXIS
     Dosage: 500 Milligram Daily;
     Route: 048
  8. ASPEGIC [Concomitant]
     Indication: THROMBOSIS PROPHYLAXIS
     Dosage: 100 Milligram Daily;
     Route: 048
  9. MECIR [Concomitant]
     Indication: BENIGN PROSTATIC HYPERPLASIA
     Dosage: 1 Dosage forms Daily;
     Route: 048
  10. OMEPRAZOLE [Concomitant]
     Dosage: 20 Milligram Daily;
     Route: 048
  11. LOXEN [Concomitant]
     Dosage: 100 Dosage forms Daily;
  12. TRIATEC [Concomitant]
     Dosage: 5 Dosage forms Daily;
  13. CACIT D3 [Concomitant]
  14. FORLAX [Concomitant]
  15. NORMACOL [Concomitant]
     Indication: CONSTIPATION
  16. DUROGESIC [Concomitant]
     Dosage: 8.3333 Microgram Daily; TD
  17. OXYNORM [Concomitant]
     Dosage: 30 Milligram Daily; TD
  18. OXYNORM [Concomitant]
     Dosage: 24 Milligram Daily; TD
     Route: 058
     Dates: start: 201101
  19. LANTUS [Concomitant]
     Dosage: 10 IU (International Unit) Daily;

REACTIONS (1)
  - Prostatitis [Not Recovered/Not Resolved]
